FAERS Safety Report 7112925-7 (Version None)
Quarter: 2010Q4

REPORT INFORMATION
  Report Type: 
  Country: None (occurrence: None)
  Receive Date: 20101119
  Receipt Date: 20101109
  Transmission Date: 20110411
  Serious: Yes (Hospitalization)
  Sender: FDA-Public Use
  Company Number: US-CELGENEUS-163-20785-10021448

PATIENT
  Sex: Female

DRUGS (4)
  1. THALOMID [Suspect]
     Route: 048
     Dates: start: 20091201
  2. THALOMID [Suspect]
     Route: 048
     Dates: start: 20060901
  3. THALOMID [Suspect]
     Route: 048
     Dates: start: 20061001
  4. THALOMID [Suspect]
     Route: 048
     Dates: start: 20071101

REACTIONS (1)
  - ORAL SURGERY [None]
